FAERS Safety Report 7812334 (Version 2)
Quarter: 2019Q2

REPORT INFORMATION
  Report Type: Spontaneous
  Country: US (occurrence: US)
  Receive Date: 20110215
  Receipt Date: 20190424
  Transmission Date: 20190711
  Serious: Yes (Hospitalization)
  Sender: FDA-Public Use
  Company Number: US-MYLANLABS-2011S1002399

PATIENT
  Age: 47 Year
  Sex: Female

DRUGS (3)
  1. RELACORE [Concomitant]
     Indication: WEIGHT DECREASED
     Dosage: UNK
     Route: 065
  2. CALCIUM CARBONATE. [Suspect]
     Active Substance: CALCIUM CARBONATE
     Indication: DYSPEPSIA
     Dosage: UP TO 4500 MG/D
     Route: 048
  3. IBUPROFEN. [Suspect]
     Active Substance: IBUPROFEN
     Indication: PRODUCT USED FOR UNKNOWN INDICATION
     Dosage: UP TO 3600 MG/D
     Route: 065

REACTIONS (7)
  - Renal failure [Unknown]
  - Milk-alkali syndrome [Recovering/Resolving]
  - Dizziness [Recovered/Resolved]
  - Confusional state [Recovered/Resolved]
  - Gastric disorder [Unknown]
  - Memory impairment [Unknown]
  - Asthenia [Recovering/Resolving]
